FAERS Safety Report 5594919-6 (Version None)
Quarter: 2007Q4

REPORT INFORMATION
  Report Type: 
  Country: None (occurrence: None)
  Receive Date: 20071218
  Receipt Date: 20070312
  Transmission Date: 20080405
  Serious: Yes (Hospitalization, Other)
  Sender: FDA-Public Use
  Company Number: 2007019659

PATIENT
  Age: 48 Year
  Sex: Male
  Weight: 231.3 kg

DRUGS (1)
  1. BEXTRA [Suspect]
     Indication: PAIN IN EXTREMITY
     Dosage: 10 MG, 1-2 TIMES DAILY
     Dates: start: 20020101

REACTIONS (1)
  - CARDIAC FAILURE CONGESTIVE [None]
